FAERS Safety Report 24790731 (Version 1)
Quarter: 2024Q4

REPORT INFORMATION
  Report Type: Report from Study
  Country: CN (occurrence: CN)
  Receive Date: 20241230
  Receipt Date: 20241230
  Transmission Date: 20250114
  Serious: Yes (Death, Other)
  Sender: JOHNSON AND JOHNSON
  Company Number: CN-JNJFOC-20241251283

PATIENT

DRUGS (1)
  1. BOSENTAN [Suspect]
     Active Substance: BOSENTAN
     Indication: Pulmonary hypertension
     Route: 065

REACTIONS (46)
  - Death [Fatal]
  - Atrial fibrillation [Unknown]
  - Pulmonary oedema [Unknown]
  - Sepsis [Unknown]
  - Respiratory failure [Unknown]
  - Syncope [Unknown]
  - Blood bilirubin increased [Unknown]
  - Pneumonia [Unknown]
  - Respiratory distress [Unknown]
  - Dyspnoea at rest [Unknown]
  - Acute respiratory failure [Unknown]
  - Chronic respiratory failure [Unknown]
  - Hypoxia [Unknown]
  - Pneumothorax [Unknown]
  - Pulmonary congestion [Unknown]
  - Pulmonary haemorrhage [Unknown]
  - Acute pulmonary oedema [Unknown]
  - Pulmonary artery aneurysm [Unknown]
  - Haemoptysis [Unknown]
  - Oedema peripheral [Unknown]
  - Influenza [Unknown]
  - Dehydration [Unknown]
  - Chest pain [Unknown]
  - Fluid retention [Unknown]
  - Blood alkaline phosphatase increased [Unknown]
  - Liver function test abnormal [Unknown]
  - Fall [Unknown]
  - Alanine aminotransferase increased [Unknown]
  - Aspartate aminotransferase increased [Unknown]
  - Dyspnoea [Unknown]
  - Oedema [Unknown]
  - Dyspnoea exertional [Unknown]
  - Dyspnoea paroxysmal nocturnal [Unknown]
  - Nasal congestion [Unknown]
  - Productive cough [Unknown]
  - Pleural effusion [Unknown]
  - Respiratory disorder [Unknown]
  - Respiratory tract congestion [Unknown]
  - Respiration abnormal [Unknown]
  - Pleurisy [Unknown]
  - Pleuritic pain [Unknown]
  - Orthopnoea [Unknown]
  - Pulmonary pain [Unknown]
  - Tracheal disorder [Unknown]
  - Irregular breathing [Unknown]
  - Bronchial secretion retention [Unknown]
